FAERS Safety Report 8173233 (Version 2)
Quarter: 2012Q4

REPORT INFORMATION
  Report Type: Report from Study
  Country: US (occurrence: US)
  Receive Date: 20111007
  Receipt Date: 20121030
  Transmission Date: 20130627
  Serious: Yes (Hospitalization)
  Sender: FDA-Public Use
  Company Number: US-ABBOTT-11P-163-0722547-00

PATIENT
  Age: 28 Year
  Sex: Female

DRUGS (6)
  1. KALETRA TABLETS [Suspect]
     Indication: ANTIRETROVIRAL THERAPY
     Route: 048
     Dates: start: 20110101, end: 20110418
  2. NORVIR TABLETS [Suspect]
     Indication: ANTIRETROVIRAL THERAPY
     Route: 048
     Dates: start: 20110418
  3. COMBIVIR [Suspect]
     Indication: ANTIRETROVIRAL THERAPY
     Route: 048
     Dates: start: 20110101, end: 20110418
  4. REYATAZ [Suspect]
     Indication: ANTIRETROVIRAL THERAPY
     Route: 048
     Dates: start: 20110418
  5. VIREAD [Suspect]
     Indication: ANTIRETROVIRAL THERAPY
     Route: 048
  6. RETROVIR [Suspect]
     Indication: ANTIVIRAL TREATMENT
     Route: 042
     Dates: start: 20110911, end: 20110911

REACTIONS (3)
  - Nausea [Unknown]
  - Vomiting [Unknown]
  - Candidiasis [Unknown]
